FAERS Safety Report 8890761 (Version 2)
Quarter: 2012Q4

REPORT INFORMATION
  Report Type: 
  Country: IT (occurrence: IT)
  Receive Date: 20121107
  Receipt Date: 20121207
  Transmission Date: 20130627
  Serious: Yes (Hospitalization)
  Sender: FDA-Public Use
  Company Number: IT-BAYER-2012-115505

PATIENT
  Age: 65 Year
  Sex: Male

DRUGS (1)
  1. NEXAVAR [Suspect]
     Indication: LIVER CELL CARCINOMA NON-RESECTABLE
     Dosage: Daily dose 600 mg
     Route: 048
     Dates: start: 20120927, end: 20121023

REACTIONS (1)
  - Cerebral ischaemia [Unknown]
